FAERS Safety Report 11004968 (Version 1)
Quarter: 2015Q2

REPORT INFORMATION
  Report Type: Spontaneous
  Country: US (occurrence: US)
  Receive Date: 20150409
  Receipt Date: 20150409
  Transmission Date: 20150821
  Serious: Yes (Other)
  Sender: FDA-Public Use
  Company Number: US-BAYER-2015-095019

PATIENT
  Age: 20 Year
  Sex: Female

DRUGS (2)
  1. MIRENA [Suspect]
     Active Substance: LEVONORGESTREL
     Dosage: 20 MCG/24HR, CONT
     Route: 015
     Dates: start: 20090519, end: 20140415
  2. MIRENA [Suspect]
     Active Substance: LEVONORGESTREL
     Dosage: 20 MCG/24HR, CONT
     Route: 015
     Dates: start: 20140415, end: 20140822

REACTIONS (18)
  - Visual impairment [None]
  - Headache [None]
  - Intracranial pressure increased [None]
  - Migraine [None]
  - Vomiting [None]
  - Injury [None]
  - Nausea [None]
  - Dizziness [None]
  - Hypoaesthesia [None]
  - Tinnitus [None]
  - Benign intracranial hypertension [None]
  - Confusional state [None]
  - Pain [None]
  - Memory impairment [None]
  - Papilloedema [None]
  - Vision blurred [None]
  - Photophobia [None]
  - Phonophobia [None]

NARRATIVE: CASE EVENT DATE: 2011
